FAERS Safety Report 5932268-4 (Version None)
Quarter: 2008Q4

REPORT INFORMATION
  Report Type: 
  Country: None (occurrence: None)
  Receive Date: 20081022
  Receipt Date: 20080922
  Transmission Date: 20090506
  Serious: Yes (Other)
  Sender: FDA-Public Use
  Company Number: 2008S1017230

PATIENT
  Age: 36 Year
  Sex: Female

DRUGS (3)
  1. DILTIAZEM [Suspect]
     Indication: HYPERTENSION
     Dosage: 120 MG; DAILY;
  2. TAMOXIFEN [Concomitant]
  3. GOSERELIN [Concomitant]

REACTIONS (1)
  - ACUTE GENERALISED EXANTHEMATOUS PUSTULOSIS [None]
